FAERS Safety Report 16228347 (Version 1)
Quarter: 2019Q2

REPORT INFORMATION
  Report Type: Spontaneous
  Country: US (occurrence: US)
  Receive Date: 20190422
  Receipt Date: 20190422
  Transmission Date: 20190711
  Serious: Yes (Other)
  Sender: FDA-Public Use
  Company Number: None

PATIENT
  Age: 44 Year
  Sex: Female
  Weight: 92.25 kg

DRUGS (2)
  1. CALCIUM [Concomitant]
     Active Substance: CALCIUM
  2. BREO ELLIPTA [Suspect]
     Active Substance: FLUTICASONE FUROATE\VILANTEROL TRIFENATATE
     Indication: ASTHMA
     Dosage: ?          QUANTITY:1 INHALATION(S);?
     Route: 055
     Dates: start: 20170901

REACTIONS (1)
  - Sinusitis [None]

NARRATIVE: CASE EVENT DATE: 20190312
